FAERS Safety Report 12289676 (Version 1)
Quarter: 2016Q2

REPORT INFORMATION
  Report Type: Report from Study
  Country: US (occurrence: US)
  Receive Date: 20160421
  Receipt Date: 20160421
  Transmission Date: 20160815
  Serious: Yes (Death)
  Sender: FDA-Public Use
  Company Number: US-ASTRAZENECA-2016SE05061

PATIENT
  Age: 26044 Day
  Sex: Female

DRUGS (4)
  1. ATENOLOL. [Suspect]
     Active Substance: ATENOLOL
     Route: 048
  2. LOSARTAN. [Concomitant]
     Active Substance: LOSARTAN
  3. AMLODIPINE [Concomitant]
     Active Substance: AMLODIPINE BESYLATE
  4. TAGRISSO [Suspect]
     Active Substance: OSIMERTINIB
     Indication: LUNG CARCINOMA CELL TYPE UNSPECIFIED STAGE 0
     Route: 048
     Dates: start: 20160106

REACTIONS (6)
  - Death [Fatal]
  - Diarrhoea [Unknown]
  - Dizziness [Recovered/Resolved]
  - Feeling abnormal [Unknown]
  - Insomnia [Unknown]
  - Confusional state [Unknown]

NARRATIVE: CASE EVENT DATE: 20160112
